FAERS Safety Report 9934827 (Version 1)
Quarter: 2014Q1

REPORT INFORMATION
  Report Type: Spontaneous
  Country: CA (occurrence: CA)
  Receive Date: 20140228
  Receipt Date: 20140228
  Transmission Date: 20141002
  Serious: Yes (Other)
  Sender: FDA-Public Use
  Company Number: PHHY2014CA023590

PATIENT
  Age: 79 Year
  Sex: Male

DRUGS (4)
  1. VALPROIC ACID [Suspect]
     Indication: AGGRESSION
  2. OLANZAPINE [Suspect]
     Indication: AGGRESSION
  3. GABAPENTIN [Suspect]
     Indication: AGGRESSION
     Dosage: 900 MG, DAILY
  4. MEMANTINE HYDROCHLORIDE [Suspect]
     Indication: AGGRESSION

REACTIONS (7)
  - Akathisia [Unknown]
  - Petechiae [Unknown]
  - Contusion [Unknown]
  - Irritability [Unknown]
  - Abnormal behaviour [Unknown]
  - Skin disorder [Unknown]
  - Drug effect incomplete [Unknown]
